FAERS Safety Report 6424861-X (Version None)
Quarter: 2009Q4

REPORT INFORMATION
  Report Type: 
  Country: None (occurrence: None)
  Receive Date: 20091102
  Receipt Date: 20091102
  Transmission Date: 20100525
  Serious: No
  Sender: FDA-Public Use
  Company Number: None

PATIENT

DRUGS (1)
  1. CETUXIMAB [Suspect]
     Indication: COLON CANCER
     Dosage: 700 MG OTHER IV
     Route: 042
     Dates: start: 20090430, end: 20090430

REACTIONS (1)
  - ANAPHYLACTIC REACTION [None]
